FAERS Safety Report 16263967 (Version 1)
Quarter: 2019Q2

REPORT INFORMATION
  Report Type: Spontaneous
  Country: GB (occurrence: GB)
  Receive Date: 20190502
  Receipt Date: 20190502
  Transmission Date: 20190711
  Serious: Yes (Other)
  Sender: FDA-Public Use
  Company Number: GB-ACCORD-102609

PATIENT
  Age: 54 Year
  Sex: Male

DRUGS (5)
  1. DOMPERIDONE [Concomitant]
     Active Substance: DOMPERIDONE
  2. MESALAZINE [Concomitant]
     Active Substance: MESALAMINE
     Indication: GALLBLADDER ADENOCARCINOMA
  3. CAPECITABINE. [Suspect]
     Active Substance: CAPECITABINE
     Indication: GALLBLADDER ADENOCARCINOMA
     Dosage: 2800 MG TWO TIMES PER DAY
  4. FLUOXETINE [Concomitant]
     Active Substance: FLUOXETINE HYDROCHLORIDE
  5. ATORVASTATIN [Concomitant]
     Active Substance: ATORVASTATIN
     Indication: HYPERCHOLESTEROLAEMIA

REACTIONS (3)
  - Road traffic accident [Unknown]
  - Off label use [Unknown]
  - Leukoencephalopathy [Recovered/Resolved]
